FAERS Safety Report 8554420-4 (Version None)
Quarter: 2012Q3

REPORT INFORMATION
  Report Type: 
  Country: None (occurrence: None)
  Receive Date: 20120731
  Receipt Date: 20120723
  Transmission Date: 20120928
  Serious: Yes (Hospitalization)
  Sender: FDA-Public Use
  Company Number: JP-VERTEX PHARMACEUTICALS INC.-AE-2012-009791

PATIENT
  Age: 68 Year
  Sex: Female

DRUGS (14)
  1. DOGMATYL [Concomitant]
     Route: 048
     Dates: start: 20120425, end: 20120524
  2. TELAVIC (TELAPREVIR) [Suspect]
     Indication: HEPATITIS C
     Route: 048
     Dates: start: 20120404, end: 20120419
  3. PEGINTERFERON ALFA-2B [Concomitant]
     Indication: HEPATITIS C
     Route: 058
     Dates: start: 20120404, end: 20120508
  4. RIBAVIRIN [Concomitant]
     Route: 048
     Dates: start: 20120404, end: 20120417
  5. ALENDRONATE SODIUM [Concomitant]
     Route: 048
     Dates: start: 20120411
  6. ALENDRONATE SODIUM [Concomitant]
     Route: 048
  7. RIBAVIRIN [Concomitant]
     Route: 048
     Dates: start: 20120418, end: 20120419
  8. SELBEX [Concomitant]
     Route: 048
  9. TELAVIC (TELAPREVIR) [Suspect]
     Route: 048
     Dates: end: 20120508
  10. NEO-MINOPHAGEN C [Concomitant]
     Dates: start: 20120126
  11. PRIMPERAN TAB [Concomitant]
     Route: 048
     Dates: start: 20120406
  12. RIBAVIRIN [Concomitant]
     Route: 048
     Dates: start: 20120510, end: 20120524
  13. LEMALC [Concomitant]
     Route: 048
  14. ICROL [Concomitant]
     Route: 048

REACTIONS (2)
  - OFF LABEL USE [None]
  - RESTLESS LEGS SYNDROME [None]
